FAERS Safety Report 10098552 (Version 1)
Quarter: 2014Q2

REPORT INFORMATION
  Report Type: Spontaneous
  Country: GB (occurrence: GB)
  Receive Date: 20140423
  Receipt Date: 20140423
  Transmission Date: 20141212
  Serious: Yes (Other)
  Sender: FDA-Public Use
  Company Number: GB-TEVA-474376ISR

PATIENT
  Age: 77 Year
  Sex: Female
  Weight: 51.7 kg

DRUGS (1)
  1. GABAPENTIN [Suspect]
     Indication: NEURALGIA
     Dosage: 200 MILLIGRAM DAILY; STOPPED LATE DECEMBER 2013
     Dates: start: 20130910, end: 201312

REACTIONS (1)
  - Proctalgia [Recovering/Resolving]
